FAERS Safety Report 7276550-X (Version None)
Quarter: 2011Q1

REPORT INFORMATION
  Report Type: 
  Country: None (occurrence: None)
  Receive Date: 20110204
  Receipt Date: 20110120
  Transmission Date: 20110831
  Serious: Yes (Death, Hospitalization, Other)
  Sender: FDA-Public Use
  Company Number: US-CELGENEUS-163-21880-10112624

PATIENT
  Sex: Female

DRUGS (14)
  1. ZINC SULFATE [Concomitant]
     Route: 065
  2. PROPRANOLOL HYDROCHLORIDE [Concomitant]
     Route: 065
  3. ZAROXOLYN [Concomitant]
     Route: 065
  4. ARANESP [Concomitant]
     Route: 065
  5. ASCORBIC ACID [Concomitant]
     Route: 065
  6. REVLIMID [Suspect]
     Route: 048
     Dates: start: 20100730, end: 20101116
  7. MELATONIN [Concomitant]
     Route: 065
  8. NASONEX [Concomitant]
     Dosage: 2 SPRAYS
     Route: 045
  9. OMEPRAZOLE [Concomitant]
     Route: 065
  10. MULTI-VITAMINS [Concomitant]
     Route: 048
  11. LASIX [Concomitant]
     Route: 065
  12. COUMADIN [Concomitant]
     Indication: ATRIAL FIBRILLATION
     Route: 048
     Dates: end: 20101101
  13. DIGOXIN [Concomitant]
     Route: 065
  14. LYRICA [Concomitant]
     Route: 065

REACTIONS (4)
  - DECUBITUS ULCER [None]
  - STAPHYLOCOCCAL SEPSIS [None]
  - MYOCARDIAL INFARCTION [None]
  - HYPOKALAEMIA [None]
